FAERS Safety Report 4903650-9 (Version None)
Quarter: 2006Q1

REPORT INFORMATION
  Report Type: 
  Country: None (occurrence: None)
  Receive Date: 20060202
  Receipt Date: 20060125
  Transmission Date: 20060701
  Serious: Yes (Other)
  Sender: FDA-Public Use
  Company Number: 2006003176

PATIENT
  Age: 86 Year
  Sex: Male
  Weight: 160 kg

DRUGS (9)
  1. AMLODIPINE [Suspect]
     Indication: HYPERTENSION
     Dosage: 5 MG (2.5 MG, BID), ORAL
     Route: 048
     Dates: start: 20041001
  2. BIAXIN [Suspect]
     Indication: RESPIRATORY TRACT INFECTION
     Dosage: 500 MG (250 MG, BID), ORAL
     Route: 048
     Dates: start: 20051105, end: 20051115
  3. FLUTICASONE PROPIONATE [Suspect]
     Indication: RESPIRATORY TRACT INFECTION
     Dosage: 500 MCG (250 MCG, BID), INHALATION
     Route: 055
     Dates: start: 20051105, end: 20051115
  4. LASIX [Suspect]
     Indication: JOINT SWELLING
     Dosage: 40 MG, ORAL
     Route: 048
     Dates: start: 20051122, end: 20051128
  5. ASPIRIN [Concomitant]
  6. LEVOTHYROXINE SODIUM [Concomitant]
  7. HYDROCHLOROTHIAZIDE [Concomitant]
  8. INHIBACE ^MERCK^ (CILAZAPRIL) [Concomitant]
  9. SALBUTAMOL (SALBUTAMOL) [Concomitant]

REACTIONS (5)
  - BLOOD PRESSURE DECREASED [None]
  - DRUG INTERACTION [None]
  - DRUG LEVEL INCREASED [None]
  - OEDEMA PERIPHERAL [None]
  - RESPIRATORY TRACT INFECTION [None]
